FAERS Safety Report 7260955-7 (Version None)
Quarter: 2011Q1

REPORT INFORMATION
  Report Type: 
  Country: None (occurrence: None)
  Receive Date: 20110130
  Receipt Date: 20101122
  Transmission Date: 20110831
  Serious: No
  Sender: FDA-Public Use
  Company Number: US-ABBOTT-10P-163-0687374-00

PATIENT
  Sex: Female
  Weight: 113.5 kg

DRUGS (13)
  1. METFORMIN [Concomitant]
     Indication: DIABETES MELLITUS
  2. SIMVASTATIN [Concomitant]
     Indication: BLOOD CHOLESTEROL INCREASED
  3. MELOXICAM [Concomitant]
     Indication: ANKYLOSING SPONDYLITIS
  4. NORVASC [Concomitant]
     Indication: HYPERTENSION
  5. METHOTREXATE [Concomitant]
     Indication: ANKYLOSING SPONDYLITIS
     Dates: start: 20101101
  6. HYDROCODONE [Concomitant]
     Indication: PAIN
  7. INDERAL [Concomitant]
     Indication: HYPERTENSION
  8. HYDROCHLOROTHIAZIDE [Concomitant]
     Indication: FLUID RETENTION
  9. NEURONTIN [Concomitant]
     Indication: NEURALGIA
  10. HUMIRA [Suspect]
     Dates: start: 20100301, end: 20100501
  11. FOLIC ACID [Concomitant]
     Indication: PRODUCT USED FOR UNKNOWN INDICATION
  12. HUMIRA [Suspect]
     Indication: ANKYLOSING SPONDYLITIS
     Dates: start: 20070101, end: 20100201
  13. HUMIRA [Suspect]
     Dates: start: 20100501

REACTIONS (3)
  - PAIN [None]
  - URINARY TRACT INFECTION [None]
  - BRONCHITIS [None]
